FAERS Safety Report 5065361-1 (Version None)
Quarter: 2006Q3

REPORT INFORMATION
  Report Type: 
  Country: None (occurrence: None)
  Receive Date: 20060726
  Receipt Date: 20060713
  Transmission Date: 20061208
  Serious: Yes (Life-Threatening)
  Sender: FDA-Public Use
  Company Number: 227392

PATIENT
  Age: 84 Year
  Sex: Female

DRUGS (6)
  1. RITUXAN [Suspect]
     Indication: B-CELL LYMPHOMA
     Dosage: 375 MG/M2, INTRAVENOUS
     Route: 042
     Dates: start: 20050110, end: 20050509
  2. FLUDARABINE [Suspect]
     Indication: B-CELL LYMPHOMA
     Dosage: 25 MG/M2, INTRAVENOUS
     Route: 042
     Dates: start: 20050110, end: 20050513
  3. PANTOPRAZOLE SODIUM [Concomitant]
  4. AMLODIPINE BESYLATE [Concomitant]
  5. CLONAZEPAM [Concomitant]
  6. ACYCLOVIR [Concomitant]

REACTIONS (2)
  - APLASIA [None]
  - BONE MARROW FAILURE [None]
